FAERS Safety Report 23535215 (Version 1)
Quarter: 2024Q1

REPORT INFORMATION
  Report Type: Spontaneous
  Country: CA (occurrence: CA)
  Receive Date: 20240218
  Receipt Date: 20240218
  Transmission Date: 20240409
  Serious: Yes (Death, Life-Threatening, Other)
  Sender: FDA-Public Use
  Company Number: CA-AUROBINDO-AUR-APL-2024-006796

PATIENT
  Age: 65 Year
  Sex: Female
  Weight: 78 kg

DRUGS (5)
  1. PIPERACILLIN AND TAZOBACTAM [Suspect]
     Active Substance: PIPERACILLIN SODIUM\TAZOBACTAM SODIUM
     Indication: Product used for unknown indication
     Dosage: 100 MILLILITER
     Route: 065
  2. PRIVIGEN [Suspect]
     Active Substance: HUMAN IMMUNOGLOBULIN G
     Indication: Polymyositis
     Dosage: 200 MILLILITER
     Route: 042
  3. PRIVIGEN [Suspect]
     Active Substance: HUMAN IMMUNOGLOBULIN G
     Dosage: 25 MILLILITER
     Route: 042
  4. BENADRYL [Concomitant]
     Active Substance: DIPHENHYDRAMINE HYDROCHLORIDE
     Indication: Premedication
     Dosage: 25 MILLIGRAM
     Route: 042
  5. LASIX [Concomitant]
     Active Substance: FUROSEMIDE
     Indication: Product used for unknown indication
     Dosage: 240 MILLIGRAM
     Route: 042

REACTIONS (18)
  - Acute pulmonary oedema [Fatal]
  - Arteriosclerosis [Fatal]
  - Asthenia [Fatal]
  - Blood pressure increased [Fatal]
  - Chills [Fatal]
  - Crepitations [Fatal]
  - Cyanosis [Fatal]
  - Dyspnoea [Fatal]
  - Heart rate increased [Fatal]
  - Hypertension [Fatal]
  - Hypoxia [Fatal]
  - Intestinal ischaemia [Fatal]
  - Respiratory rate increased [Fatal]
  - Rhonchi [Fatal]
  - Tachycardia [Fatal]
  - Wheezing [Fatal]
  - No adverse event [Fatal]
  - Off label use [Fatal]
